FAERS Safety Report 6816249-4 (Version None)
Quarter: 2010Q3

REPORT INFORMATION
  Report Type: 
  Country: None (occurrence: None)
  Receive Date: 20100702
  Receipt Date: 20100702
  Transmission Date: 20110219
  Serious: Yes (Other)
  Sender: FDA-Public Use
  Company Number: None

PATIENT
  Age: 79 Year
  Sex: Male
  Weight: 113.4446 kg

DRUGS (19)
  1. FERAHEME [Suspect]
     Indication: IRON DEFICIENCY ANAEMIA
     Dosage: 510 MG WEEKLY X 4 IV
     Route: 042
     Dates: start: 20100415, end: 20100505
  2. WARFARIN SODIUM [Concomitant]
  3. SIMVASTATIN [Concomitant]
  4. FENOFIBRIC ACID [Concomitant]
  5. SELENIUM SULFIDE [Concomitant]
  6. DOXAZOSIN MESYLATE [Concomitant]
  7. DIOVAN HCT [Concomitant]
  8. DUTASTERIDE [Concomitant]
  9. ADVAIR DISKUS 100/50 [Concomitant]
  10. DIGOXIN [Concomitant]
  11. ALLOPURINOL [Concomitant]
  12. ASAPIRIN [Concomitant]
  13. FUROSEMIDE [Concomitant]
  14. OMERPRAZOLE [Concomitant]
  15. RHINOCORT [Concomitant]
  16. BUDESONIDE [Concomitant]
  17. PROSCAR [Concomitant]
  18. VITAMIN TAB [Concomitant]
  19. GARLIC [Concomitant]

REACTIONS (7)
  - CORONARY ARTERY DISEASE [None]
  - DYSPNOEA EXERTIONAL [None]
  - INTERMITTENT CLAUDICATION [None]
  - LIMB DISCOMFORT [None]
  - MYOCARDIAL INFARCTION [None]
  - MYOCARDIAL ISCHAEMIA [None]
  - PULSE ABNORMAL [None]
